FAERS Safety Report 10264412 (Version 1)
Quarter: 2014Q2

REPORT INFORMATION
  Report Type: Spontaneous
  Country: US (occurrence: None)
  Receive Date: 20140623
  Receipt Date: 20140623
  Transmission Date: 20141212
  Serious: No
  Sender: FDA-Public Use
  Company Number: None

PATIENT
  Age: 66 Year
  Sex: Female
  Weight: 54.43 kg

DRUGS (1)
  1. TOBRAMYCIN-DEXAMETH ASONE [Suspect]
     Indication: CONJUNCTIVITIS
     Dosage: 1 DROP, FOUR TIMES DAILY, INTO THE EYE
     Dates: start: 20140619, end: 20140622

REACTIONS (5)
  - Pain [None]
  - Middle insomnia [None]
  - Insomnia [None]
  - Inappropriate schedule of drug administration [None]
  - Headache [None]
